FAERS Safety Report 9550417 (Version 1)
Quarter: 2013Q3

REPORT INFORMATION
  Report Type: Spontaneous
  Country: US (occurrence: US)
  Receive Date: 20130924
  Receipt Date: 20130924
  Transmission Date: 20140515
  Serious: No
  Sender: FDA-Public Use
  Company Number: US-SANOFI-AVENTIS-2013SA076758

PATIENT
  Age: 52 Year
  Sex: Female
  Weight: 46.26 kg

DRUGS (11)
  1. AUBAGIO [Suspect]
     Route: 048
     Dates: start: 20130619, end: 20130622
  2. AUBAGIO [Suspect]
     Route: 048
     Dates: start: 20130718
  3. BACLOFEN [Concomitant]
     Indication: MULTIPLE SCLEROSIS
     Route: 065
     Dates: start: 2009
  4. ZANAFLEX [Concomitant]
     Indication: MULTIPLE SCLEROSIS
     Route: 065
     Dates: start: 2010
  5. KLONOPIN [Concomitant]
     Indication: MYALGIA
     Route: 065
     Dates: start: 200901
  6. REGLAN [Concomitant]
     Indication: IMPAIRED GASTRIC EMPTYING
     Route: 065
     Dates: start: 2006
  7. VITAMIN A [Concomitant]
     Route: 065
  8. CALCIUM [Concomitant]
     Route: 065
  9. VITAMIN D [Concomitant]
     Route: 065
  10. FIORICET [Concomitant]
     Indication: MIGRAINE
     Route: 065
  11. VIGIL [Concomitant]
     Indication: FATIGUE
     Route: 065

REACTIONS (5)
  - Vomiting [Not Recovered/Not Resolved]
  - Blister [Not Recovered/Not Resolved]
  - Nausea [Not Recovered/Not Resolved]
  - Pyrexia [Not Recovered/Not Resolved]
  - Cough [Not Recovered/Not Resolved]
